FAERS Safety Report 10248657 (Version 1)
Quarter: 2014Q2

REPORT INFORMATION
  Report Type: Spontaneous
  Country: TW (occurrence: TW)
  Receive Date: 20140620
  Receipt Date: 20140620
  Transmission Date: 20141212
  Serious: Yes (Hospitalization, Other)
  Sender: FDA-Public Use
  Company Number: TW-ROCHE-1421278

PATIENT
  Sex: Female

DRUGS (1)
  1. KADCYLA [Suspect]
     Indication: HER-2 POSITIVE BREAST CANCER
     Dosage: DATE OF LAST DOSE TAKEN PRIOR TO EVENT: 08/JUN/2014.
     Route: 042
     Dates: start: 201405

REACTIONS (2)
  - Haemorrhage intracranial [Not Recovered/Not Resolved]
  - Platelet count decreased [Unknown]
